FAERS Safety Report 4985713-5 (Version None)
Quarter: 2006Q2

REPORT INFORMATION
  Report Type: 
  Country: None (occurrence: None)
  Receive Date: 20060428
  Receipt Date: 20050406
  Transmission Date: 20061013
  Serious: No
  Sender: FDA-Public Use
  Company Number: US-GLAXOSMITHKLINE-A0553027A

PATIENT
  Age: 47 Year
  Sex: Female

DRUGS (2)
  1. ZOFRAN [Suspect]
     Route: 048
     Dates: start: 20050317
  2. NO CONCURRENT MEDICATION [Concomitant]

REACTIONS (4)
  - DIARRHOEA [None]
  - PRURITUS [None]
  - RASH [None]
  - VOMITING [None]
